FAERS Safety Report 9411183 (Version 1)
Quarter: 2013Q3

REPORT INFORMATION
  Report Type: Spontaneous
  Country: US (occurrence: US)
  Receive Date: 20130721
  Receipt Date: 20130721
  Transmission Date: 20140515
  Serious: Yes (Hospitalization, Other)
  Sender: FDA-Public Use
  Company Number: US-MYLANLABS-2013S1015420

PATIENT
  Age: 2 Decade
  Sex: Male

DRUGS (2)
  1. LEVETIRACETAM TABLETS [Suspect]
     Indication: CONVULSION
     Dates: start: 201104, end: 201105
  2. TOPAMAX [Suspect]
     Indication: CONVULSION

REACTIONS (4)
  - Hallucination, visual [Not Recovered/Not Resolved]
  - Impulse-control disorder [Not Recovered/Not Resolved]
  - Mood altered [Not Recovered/Not Resolved]
  - Disturbance in attention [Not Recovered/Not Resolved]
